FAERS Safety Report 4757746-5 (Version None)
Quarter: 2005Q3

REPORT INFORMATION
  Report Type: 
  Country: None (occurrence: None)
  Receive Date: 20050830
  Receipt Date: 20050822
  Transmission Date: 20060218
  Serious: Yes (Hospitalization, Other)
  Sender: FDA-Public Use
  Company Number: 2005118171

PATIENT
  Age: 84 Year
  Sex: Female

DRUGS (3)
  1. ATORVASTATIN CALCIUM [Suspect]
     Indication: ILL-DEFINED DISORDER
     Dosage: 20 MG (1 IN 1 D)
     Dates: start: 20010101, end: 20050815
  2. PLAVIX [Concomitant]
  3. FOZITEC (FOSINOPRIL) [Concomitant]

REACTIONS (3)
  - ARTERIAL THERAPEUTIC PROCEDURE [None]
  - MUSCLE SPASMS [None]
  - MUSCULAR WEAKNESS [None]
